FAERS Safety Report 6847478-1 (Version None)
Quarter: 2010Q3

REPORT INFORMATION
  Report Type: 
  Country: None (occurrence: None)
  Receive Date: 20100716
  Receipt Date: 20100707
  Transmission Date: 20110219
  Serious: Yes (Other)
  Sender: FDA-Public Use
  Company Number: JP-PFIZER INC-2010081896

PATIENT
  Age: 80 Year
  Sex: Female

DRUGS (3)
  1. ZOLOFT [Suspect]
     Indication: DEPRESSION
     Dosage: 25 MG/DAY
     Route: 048
     Dates: start: 20100620, end: 20100629
  2. LIPITOR [Concomitant]
     Indication: HYPERTENSION
     Dosage: 10 MG/DAY
     Route: 048
     Dates: start: 20100207
  3. CALBLOCK [Concomitant]
     Indication: HYPERTENSION
     Dosage: 16 MG/DAY
     Route: 048
     Dates: start: 20100207

REACTIONS (1)
  - PLATELET COUNT DECREASED [None]
